FAERS Safety Report 8005866-4 (Version None)
Quarter: 2011Q4

REPORT INFORMATION
  Report Type: 
  Country: None (occurrence: None)
  Receive Date: 20111223
  Receipt Date: 20111215
  Transmission Date: 20120403
  Serious: Yes (Hospitalization, Other)
  Sender: FDA-Public Use
  Company Number: US-ASTRAZENECA-2010SE38990

PATIENT
  Age: 49 Year
  Sex: Female

DRUGS (1)
  1. NEXIUM [Suspect]
     Route: 048

REACTIONS (5)
  - LARGE INTESTINE CARCINOMA [None]
  - VISUAL ACUITY REDUCED [None]
  - COLON CANCER [None]
  - HAEMATOCHEZIA [None]
  - OVARIAN CYST [None]
